FAERS Safety Report 11061411 (Version 1)
Quarter: 2015Q2

REPORT INFORMATION
  Report Type: Spontaneous
  Country: US (occurrence: None)
  Receive Date: 20150423
  Receipt Date: 20150423
  Transmission Date: 20150821
  Serious: Yes (Other)
  Sender: FDA-Public Use
  Company Number: None

PATIENT
  Age: 23 Year
  Sex: Male
  Weight: 42.18 kg

DRUGS (3)
  1. MEDROL [Concomitant]
     Active Substance: METHYLPREDNISOLONE
  2. CIMZIA [Suspect]
     Active Substance: CERTOLIZUMAB PEGOL
     Indication: CROHN^S DISEASE
     Dosage: 2  INJECTIONS    1ST, 2ND, 4TH WEEK  INTO THE MUSCLE
     Route: 030
     Dates: start: 20150421, end: 20150421
  3. PENTASA [Concomitant]
     Active Substance: MESALAMINE

REACTIONS (9)
  - Pyrexia [None]
  - Nausea [None]
  - Blindness [None]
  - Diarrhoea [None]
  - Chills [None]
  - Confusional state [None]
  - Muscular weakness [None]
  - Dizziness [None]
  - Deafness [None]

NARRATIVE: CASE EVENT DATE: 20150421
